FAERS Safety Report 5076633-9 (Version None)
Quarter: 2006Q3

REPORT INFORMATION
  Report Type: 
  Country: None (occurrence: None)
  Receive Date: 20060810
  Receipt Date: 20060803
  Transmission Date: 20061208
  Serious: Yes (Death, Hospitalization)
  Sender: FDA-Public Use
  Company Number: FR-BRISTOL-MYERS SQUIBB COMPANY-13467808

PATIENT
  Age: 58 Year
  Sex: Male

DRUGS (10)
  1. GLUCOPHAGE [Suspect]
     Route: 048
     Dates: end: 20060629
  2. VASTEN TABS 20 MG [Suspect]
     Route: 048
     Dates: end: 20060629
  3. LASILIX [Suspect]
     Route: 048
     Dates: end: 20060629
  4. CARDENSIEL [Suspect]
     Route: 048
     Dates: end: 20060629
  5. COVERSYL [Suspect]
     Route: 048
     Dates: end: 20060629
  6. SEROPLEX [Suspect]
     Route: 048
     Dates: start: 20060407, end: 20060629
  7. DAFALGAN [Concomitant]
  8. ASPEGIC 1000 [Concomitant]
  9. DIAMICRON [Concomitant]
     Route: 048
  10. GLUCOR [Concomitant]

REACTIONS (3)
  - CARDIO-RESPIRATORY ARREST [None]
  - MULTI-ORGAN FAILURE [None]
  - VENTRICULAR FIBRILLATION [None]
